FAERS Safety Report 14701010 (Version 10)
Quarter: 2024Q3

REPORT INFORMATION
  Report Type: Spontaneous
  Country: CA (occurrence: CA)
  Receive Date: 20180330
  Receipt Date: 20240702
  Transmission Date: 20241017
  Serious: Yes (Other)
  Sender: BAUSCH AND LOMB
  Company Number: CA-BAUSCH-BL-2018-007773

PATIENT
  Age: 25 Year
  Sex: Male

DRUGS (31)
  1. METRONIDAZOLE [Suspect]
     Active Substance: METRONIDAZOLE
     Indication: Product used for unknown indication
     Route: 065
  2. MESALAMINE [Suspect]
     Active Substance: MESALAMINE
     Indication: Product used for unknown indication
     Dosage: NOT SPECIFIED
     Route: 065
  3. BUDESONIDE [Suspect]
     Active Substance: BUDESONIDE
     Indication: Colitis ulcerative
     Route: 048
  4. BUDESONIDE [Suspect]
     Active Substance: BUDESONIDE
     Route: 048
  5. BUDESONIDE [Suspect]
     Active Substance: BUDESONIDE
     Route: 065
  6. NORITATE [Suspect]
     Active Substance: METRONIDAZOLE
     Indication: Product used for unknown indication
     Route: 065
  7. BUDESONIDE [Suspect]
     Active Substance: BUDESONIDE
     Indication: Colitis ulcerative
     Route: 065
  8. METRONIDAZOLE [Suspect]
     Active Substance: METRONIDAZOLE
     Indication: Product used for unknown indication
     Route: 065
  9. IMURAN [Suspect]
     Active Substance: AZATHIOPRINE
     Indication: Colitis ulcerative
     Route: 048
     Dates: start: 2009
  10. IMURAN [Suspect]
     Active Substance: AZATHIOPRINE
     Route: 048
  11. PREDNISONE [Suspect]
     Active Substance: PREDNISONE
     Indication: Product used for unknown indication
     Dosage: NOT SPECIFIED
     Route: 065
  12. ASACOL [Suspect]
     Active Substance: MESALAMINE
     Indication: Colitis ulcerative
     Route: 065
  13. ASACOL [Suspect]
     Active Substance: MESALAMINE
     Route: 065
  14. ASACOL [Suspect]
     Active Substance: MESALAMINE
     Route: 065
  15. ENTOCORT [Suspect]
     Active Substance: BUDESONIDE
     Indication: Product used for unknown indication
     Route: 048
     Dates: start: 201704
  16. ENTOCORT [Suspect]
     Active Substance: BUDESONIDE
     Route: 048
  17. ENTOCORT [Suspect]
     Active Substance: BUDESONIDE
     Dosage: INHALATION
     Route: 055
  18. ENTOCORT [Suspect]
     Active Substance: BUDESONIDE
     Route: 048
  19. ENTOCORT [Suspect]
     Active Substance: BUDESONIDE
     Route: 048
  20. ENTOCORT [Suspect]
     Active Substance: BUDESONIDE
     Route: 065
  21. ENTOCORT [Suspect]
     Active Substance: BUDESONIDE
     Route: 065
  22. AZATHIOPRINE [Suspect]
     Active Substance: AZATHIOPRINE
     Indication: Colitis ulcerative
     Route: 048
  23. AZATHIOPRINE [Suspect]
     Active Substance: AZATHIOPRINE
     Route: 048
  24. AZATHIOPRINE [Suspect]
     Active Substance: AZATHIOPRINE
     Dosage: AZATHIOPRINE SODIUM
     Route: 048
  25. AZATHIOPRINE [Suspect]
     Active Substance: AZATHIOPRINE
     Route: 065
  26. AZATHIOPRINE [Suspect]
     Active Substance: AZATHIOPRINE
     Dosage: AZATHIOPRINE SODIUM
     Route: 048
  27. AZATHIOPRINE [Suspect]
     Active Substance: AZATHIOPRINE
     Dosage: AZATHIOPRINE
     Route: 048
  28. AZATHIOPRINE [Suspect]
     Active Substance: AZATHIOPRINE
     Dosage: AZATHIOPRINE
     Route: 048
  29. CIPROFLOXACIN [Suspect]
     Active Substance: CIPROFLOXACIN
     Indication: Pyrexia
     Route: 065
  30. CIPROFLOXACIN [Suspect]
     Active Substance: CIPROFLOXACIN
     Dosage: CIPROFLOXACIN HYDROCHLORIDE
     Route: 065
  31. BUDESONIDE [Suspect]
     Active Substance: BUDESONIDE
     Indication: Colitis ulcerative
     Route: 055

REACTIONS (7)
  - Colitis [Not Recovered/Not Resolved]
  - Night sweats [Not Recovered/Not Resolved]
  - Weight decreased [Not Recovered/Not Resolved]
  - Pyrexia [Not Recovered/Not Resolved]
  - Fatigue [Not Recovered/Not Resolved]
  - Therapeutic product effect decreased [Not Recovered/Not Resolved]
  - Therapeutic product effect decreased [Unknown]
